FAERS Safety Report 23920901 (Version 1)
Quarter: 2024Q2

REPORT INFORMATION
  Report Type: Spontaneous
  Country: NL (occurrence: NL)
  Receive Date: 20240530
  Receipt Date: 20240530
  Transmission Date: 20240716
  Serious: Yes (Other)
  Sender: FDA-Public Use
  Company Number: None

PATIENT
  Age: 70 Year
  Sex: Female
  Weight: 50 kg

DRUGS (2)
  1. PREDNISOLONE [Suspect]
     Active Substance: PREDNISOLONE
     Indication: Complex regional pain syndrome
     Dosage: 1 DAY 5MG 3 DAYS 15MG 3 DAYS 10MG 2 DAYS 5MG 1 DAY 2.5MG/ BRAND NAME NOT SPECIFIED
     Route: 065
     Dates: start: 20240416
  2. GABAPENTIN [Concomitant]
     Active Substance: GABAPENTIN
     Indication: Product used for unknown indication
     Dosage: 800MG DAILY, FOR 24 YEARS / BRAND NAME NOT SPECIFIED
     Route: 065

REACTIONS (1)
  - Arrhythmia [Not Recovered/Not Resolved]
